FAERS Safety Report 21381652 (Version 1)
Quarter: 2022Q3

REPORT INFORMATION
  Report Type: Spontaneous
  Country: US (occurrence: None)
  Receive Date: 20220926
  Receipt Date: 20220926
  Transmission Date: 20221026
  Serious: Yes (Other)
  Sender: FDA-Public Use
  Company Number: None

PATIENT
  Age: 45 Year
  Sex: Female
  Weight: 85.5 kg

DRUGS (5)
  1. CAPLYTA [Suspect]
     Active Substance: LUMATEPERONE
     Indication: Bipolar disorder
     Dosage: FREQUENCY : DAILY;?
     Route: 048
     Dates: start: 20220923, end: 20220923
  2. LAMOTRIGINE EXTENDED RELEASE [Concomitant]
     Active Substance: LAMOTRIGINE
  3. CLONAZEPAM [Concomitant]
     Active Substance: CLONAZEPAM
  4. BUPROPION [Concomitant]
  5. PROPRANOLOL [Concomitant]

REACTIONS (1)
  - Burning sensation [None]

NARRATIVE: CASE EVENT DATE: 20220923
